FAERS Safety Report 24683861 (Version 1)
Quarter: 2024Q4

REPORT INFORMATION
  Report Type: Spontaneous
  Country: RS (occurrence: RS)
  Receive Date: 20241202
  Receipt Date: 20241202
  Transmission Date: 20250114
  Serious: Yes (Hospitalization, Other)
  Sender: RYAN LABORATORIES LLC
  Company Number: RS-Ryan-000013

PATIENT
  Age: 71 Year
  Sex: Female

DRUGS (6)
  1. DULOXETINE [Suspect]
     Active Substance: DULOXETINE
     Indication: Depression
     Route: 065
  2. LEVODOPA [Concomitant]
     Active Substance: LEVODOPA
     Indication: Parkinson^s disease
     Route: 065
  3. ENTACAPONE [Concomitant]
     Active Substance: ENTACAPONE
     Indication: Parkinson^s disease
     Route: 065
  4. ROPINIROLE [Concomitant]
     Active Substance: ROPINIROLE
     Indication: Parkinson^s disease
     Route: 065
  5. BENSERAZIDE [Concomitant]
     Active Substance: BENSERAZIDE
     Indication: Parkinson^s disease
     Route: 065
  6. RASAGILINE MESYLATE [Suspect]
     Active Substance: RASAGILINE MESYLATE
     Indication: Parkinson^s disease
     Route: 065

REACTIONS (7)
  - Acute kidney injury [Unknown]
  - Respiratory failure [Unknown]
  - Urinary tract infection [Unknown]
  - Metabolic acidosis [Unknown]
  - Drug interaction [Unknown]
  - Serotonin syndrome [Unknown]
  - Incorrect dose administered [Unknown]
